FAERS Safety Report 5723381-5 (Version None)
Quarter: 2008Q2

REPORT INFORMATION
  Report Type: 
  Country: None (occurrence: None)
  Receive Date: 20080429
  Receipt Date: 20080429
  Transmission Date: 20081010
  Serious: Yes (Life-Threatening)
  Sender: FDA-Public Use
  Company Number: None

PATIENT
  Age: 10 Year
  Sex: Female

DRUGS (2)
  1. ADALIMUMAB [Suspect]
  2. METHOTREXATE [Suspect]

REACTIONS (1)
  - HODGKIN'S DISEASE [None]
